FAERS Safety Report 9430882 (Version 2)
Quarter: 2013Q3

REPORT INFORMATION
  Report Type: Report from Study
  Country: US (occurrence: US)
  Receive Date: 20130730
  Receipt Date: 20130924
  Transmission Date: 20140515
  Serious: Yes (Other)
  Sender: FDA-Public Use
  Company Number: US-PURDUE-USA-2013-0104936

PATIENT
  Age: 57 Year
  Sex: Female
  Weight: 104.31 kg

DRUGS (1)
  1. OXYCONTIN (NDA 22-272) [Suspect]
     Indication: BACK PAIN
     Dosage: 60 MG, BID
     Route: 048

REACTIONS (4)
  - Knee arthroplasty [Unknown]
  - Surgery [Unknown]
  - Hip arthroplasty [Unknown]
  - Arthralgia [Unknown]
